FAERS Safety Report 16280014 (Version 1)
Quarter: 2019Q2

REPORT INFORMATION
  Report Type: Spontaneous
  Country: US (occurrence: US)
  Receive Date: 20190507
  Receipt Date: 20190507
  Transmission Date: 20190711
  Serious: No
  Sender: FDA-Public Use
  Company Number: US-GLAXOSMITHKLINE-US2019077499

PATIENT
  Sex: Male

DRUGS (2)
  1. ABREVA [Suspect]
     Active Substance: DOCOSANOL
     Indication: ORAL HERPES
     Dosage: 2 G, TID
     Route: 061
     Dates: start: 201902
  2. ABREVA [Suspect]
     Active Substance: DOCOSANOL
     Dosage: 2 G, UNK (5 TIMES)

REACTIONS (3)
  - Condition aggravated [Unknown]
  - Oral herpes [Unknown]
  - Inappropriate schedule of product administration [Unknown]
